FAERS Safety Report 8565151-9 (Version None)
Quarter: 2012Q3

REPORT INFORMATION
  Report Type: 
  Country: None (occurrence: None)
  Receive Date: 20120724
  Receipt Date: 20120710
  Transmission Date: 20120928
  Serious: Yes (Death)
  Sender: FDA-Public Use
  Company Number: ENTC2012-0314

PATIENT
  Sex: Female

DRUGS (1)
  1. STALEVO 50 [Suspect]
     Dosage: 150/37.5/200 MG

REACTIONS (1)
  - DEATH [None]
